FAERS Safety Report 7760431-9 (Version None)
Quarter: 2011Q3

REPORT INFORMATION
  Report Type: 
  Country: None (occurrence: None)
  Receive Date: 20110919
  Receipt Date: 20110906
  Transmission Date: 20111222
  Serious: Yes (Hospitalization)
  Sender: FDA-Public Use
  Company Number: GB-MYLANLABS-2011S1018575

PATIENT
  Age: 76 Year
  Sex: Male

DRUGS (8)
  1. VALSARTAN [Concomitant]
     Indication: HYPERTENSION
  2. BENDROFLUAZIDE [Suspect]
     Indication: HYPERTENSION
  3. MIRTAZAPINE [Suspect]
  4. AMLODIPINE [Concomitant]
     Indication: HYPERTENSION
  5. MIRTAZAPINE [Suspect]
     Indication: PRODUCT USED FOR UNKNOWN INDICATION
     Dates: start: 20050101
  6. VENLAFAXINE HYDROCHLORIDE [Suspect]
     Indication: PRODUCT USED FOR UNKNOWN INDICATION
  7. MIRTAZAPINE [Suspect]
  8. MIRTAZAPINE [Suspect]

REACTIONS (5)
  - DRUG INTERACTION [None]
  - BLOOD SODIUM DECREASED [None]
  - URINARY HESITATION [None]
  - CIRCULATORY COLLAPSE [None]
  - HEAD INJURY [None]
